FAERS Safety Report 10672753 (Version 12)
Quarter: 2015Q2

REPORT INFORMATION
  Report Type: Spontaneous
  Country: US (occurrence: US)
  Receive Date: 20141223
  Receipt Date: 20150413
  Transmission Date: 20150821
  Serious: Yes (Other)
  Sender: FDA-Public Use
  Company Number: US-UNITED THERAPEUTICS-UNT-2014-010663

PATIENT
  Age: 63 Year
  Sex: Male
  Weight: 109.3 kg

DRUGS (9)
  1. TYVASO [Suspect]
     Active Substance: TREPROSTINIL
     Dosage: 18-54 ?G, QID
  2. TYVASO [Suspect]
     Active Substance: TREPROSTINIL
     Dosage: 18-54 ?G, QID
  3. XARELTO [Concomitant]
     Active Substance: RIVAROXABAN
     Indication: PRODUCT USED FOR UNKNOWN INDICATION
  4. TYVASO [Suspect]
     Active Substance: TREPROSTINIL
     Indication: PULMONARY ARTERIAL HYPERTENSION
     Dosage: 18-54 ?G, QID
     Dates: start: 20141104
  5. TYVASO [Suspect]
     Active Substance: TREPROSTINIL
     Dosage: 18-54 ?G, QID
  6. PROAIR HFA [Concomitant]
     Active Substance: ALBUTEROL SULFATE
     Indication: CHRONIC OBSTRUCTIVE PULMONARY DISEASE
     Dosage: 90 ?G, PRN
     Dates: start: 2010
  7. BERAPROST SODIUM/PLACEBO [Suspect]
     Active Substance: BERAPROST SODIUM
     Indication: PULMONARY ARTERIAL HYPERTENSION
  8. ADEMPAS [Concomitant]
     Active Substance: RIOCIGUAT
     Indication: PRODUCT USED FOR UNKNOWN INDICATION
  9. VITAMIN D                          /00107901/ [Concomitant]
     Active Substance: ERGOCALCIFEROL
     Indication: PROPHYLAXIS
     Dosage: 1000 IU, QD
     Route: 048
     Dates: start: 201402

REACTIONS (21)
  - Abdominal discomfort [Recovering/Resolving]
  - Pain in extremity [Not Recovered/Not Resolved]
  - Renal pain [Unknown]
  - Headache [Not Recovered/Not Resolved]
  - Groin pain [Not Recovered/Not Resolved]
  - Sensation of blood flow [Not Recovered/Not Resolved]
  - Weight increased [Recovered/Resolved]
  - Throat irritation [Unknown]
  - Irritability [Unknown]
  - Blood pressure increased [Unknown]
  - Dizziness [Not Recovered/Not Resolved]
  - Renal cyst [Unknown]
  - Oedema [Recovered/Resolved]
  - Medication error [Unknown]
  - Cough [Not Recovered/Not Resolved]
  - Muscular weakness [Unknown]
  - Pain [Unknown]
  - Oropharyngeal pain [Not Recovered/Not Resolved]
  - Oedema peripheral [Recovered/Resolved]
  - Chest discomfort [Recovered/Resolved]
  - Rash pruritic [Not Recovered/Not Resolved]

NARRATIVE: CASE EVENT DATE: 201411
